FAERS Safety Report 7722797-5 (Version None)
Quarter: 2011Q3

REPORT INFORMATION
  Report Type: 
  Country: None (occurrence: None)
  Receive Date: 20110901
  Receipt Date: 20110825
  Transmission Date: 20111222
  Serious: Yes (Hospitalization)
  Sender: FDA-Public Use
  Company Number: US-BIOGENIDEC-2011BI026093

PATIENT
  Age: 63 Year
  Sex: Female

DRUGS (7)
  1. ADVIL LIQUI-GELS [Concomitant]
     Indication: PRODUCT USED FOR UNKNOWN INDICATION
  2. AVONEX [Suspect]
     Route: 030
     Dates: start: 20071001, end: 20071201
  3. BP MEDICATION (NOS) [Concomitant]
     Indication: HYPERTENSION
  4. AVONEX [Suspect]
     Indication: MULTIPLE SCLEROSIS
     Route: 030
     Dates: start: 20000101
  5. GERITOL [Concomitant]
     Indication: PRODUCT USED FOR UNKNOWN INDICATION
  6. AVONEX [Suspect]
     Route: 030
     Dates: start: 20100301, end: 20110601
  7. FLUID PILLS (NOS) [Concomitant]
     Indication: PRODUCT USED FOR UNKNOWN INDICATION

REACTIONS (3)
  - DEHYDRATION [None]
  - DEPRESSION [None]
  - CYSTITIS [None]
